FAERS Safety Report 15820265 (Version 3)
Quarter: 2019Q1

REPORT INFORMATION
  Report Type: Spontaneous
  Country: US (occurrence: US)
  Receive Date: 20190114
  Receipt Date: 20190207
  Transmission Date: 20190417
  Serious: Yes (Hospitalization, Other)
  Sender: FDA-Public Use
  Company Number: US-HORIZON-BUP-RAV-0003-2019

PATIENT
  Age: 14 Year
  Sex: Female

DRUGS (7)
  1. SENNA [Concomitant]
     Active Substance: SENNA LEAF\SENNOSIDES\SENNOSIDES A AND B
     Dosage: 1 TABLET NIGHT
  2. MIRALAX [Concomitant]
     Active Substance: POLYETHYLENE GLYCOL 3350
     Dosage: 17 G TWICE DAILY
  3. SODIUM BENZOATE [Concomitant]
     Active Substance: SODIUM BENZOATE
     Dosage: 2800 MG THREE TIMES DAILY
  4. BUPHENYL [Suspect]
     Active Substance: SODIUM PHENYLBUTYRATE
     Indication: ORNITHINE TRANSCARBAMOYLASE DEFICIENCY
     Dosage: 13.3 G/M2/DAY
  5. MALTODEXTRIN [Concomitant]
     Active Substance: MALTODEXTRIN
     Dosage: 125 G ONCE DAILY
  6. CITRULLINE [Concomitant]
     Active Substance: CITRULLINE
     Dosage: 1912.5 MG TID
  7. RAVICTI [Suspect]
     Active Substance: GLYCEROL PHENYLBUTYRATE
     Indication: ORNITHINE TRANSCARBAMOYLASE DEFICIENCY
     Dosage: 13.7 G/M2/DAY
     Dates: start: 201809

REACTIONS (8)
  - Weight decreased [Unknown]
  - Blood uric acid increased [Not Recovered/Not Resolved]
  - Nausea [Recovering/Resolving]
  - Pancytopenia [Recovering/Resolving]
  - Malnutrition [Unknown]
  - Abdominal pain [Recovering/Resolving]
  - Renal injury [Not Recovered/Not Resolved]
  - Decreased appetite [Recovering/Resolving]

NARRATIVE: CASE EVENT DATE: 201811
